FAERS Safety Report 12792716 (Version 1)
Quarter: 2016Q3

REPORT INFORMATION
  Report Type: Spontaneous
  Country: US (occurrence: US)
  Receive Date: 20160929
  Receipt Date: 20160929
  Transmission Date: 20161109
  Serious: No
  Sender: FDA-Public Use
  Company Number: US-JAZZ-2016-US-011559

PATIENT
  Sex: Male

DRUGS (18)
  1. XYREM [Suspect]
     Active Substance: SODIUM OXYBATE
     Indication: NARCOLEPSY
     Dosage: 2.25 G, BID
     Route: 048
     Dates: start: 200402, end: 200406
  2. MELATONIN [Concomitant]
     Active Substance: MELATONIN
  3. XYREM [Suspect]
     Active Substance: SODIUM OXYBATE
     Dosage: 4 G, FIRST DOSE
     Route: 048
     Dates: start: 201312, end: 2014
  4. CLONAZEPAM. [Concomitant]
     Active Substance: CLONAZEPAM
  5. ISOSORBIDE. [Concomitant]
     Active Substance: ISOSORBIDE
  6. NITROSTAT [Concomitant]
     Active Substance: NITROGLYCERIN
  7. LISINOPRIL. [Concomitant]
     Active Substance: LISINOPRIL
  8. RITALIN [Concomitant]
     Active Substance: METHYLPHENIDATE HYDROCHLORIDE
  9. SIMVASTATIN. [Concomitant]
     Active Substance: SIMVASTATIN
  10. XYREM [Suspect]
     Active Substance: SODIUM OXYBATE
     Dosage: 3.75 G, SECOND DOSE
     Route: 048
     Dates: start: 201312, end: 2014
  11. XYREM [Suspect]
     Active Substance: SODIUM OXYBATE
     Dosage: 2.25 G, BID
     Route: 048
     Dates: start: 201506
  12. ATORVASTATIN [Concomitant]
     Active Substance: ATORVASTATIN
  13. CLOMIPRAMINE [Concomitant]
     Active Substance: CLOMIPRAMINE
  14. VENLAFAXINE HCL [Concomitant]
     Active Substance: VENLAFAXINE HYDROCHLORIDE
  15. METOPROLOL SUCCINATE. [Concomitant]
     Active Substance: METOPROLOL SUCCINATE
  16. XYREM [Suspect]
     Active Substance: SODIUM OXYBATE
     Indication: CATAPLEXY
     Dosage: DOSE ADJUSTMENTS
     Route: 048
     Dates: start: 200406, end: 201312
  17. ASPIRIN. [Concomitant]
     Active Substance: ASPIRIN
  18. PLAVIX [Concomitant]
     Active Substance: CLOPIDOGREL BISULFATE

REACTIONS (3)
  - Depression [Unknown]
  - Anxiety [Unknown]
  - Therapeutic response decreased [Unknown]
